FAERS Safety Report 5705973-2 (Version None)
Quarter: 2008Q2

REPORT INFORMATION
  Report Type: 
  Country: None (occurrence: None)
  Receive Date: 20080411
  Receipt Date: 20080328
  Transmission Date: 20081010
  Serious: Yes (Hospitalization)
  Sender: FDA-Public Use
  Company Number: MEDI-0006710

PATIENT
  Age: 3 Week
  Sex: Male
  Weight: 4.6 kg

DRUGS (3)
  1. SYNAGIS [Suspect]
     Dosage: 15 MG/KG, 1 IN 1 M; 15 MG/KG, 1 IN 1 M; 15 MG/KG, 1 IN 1 M
     Dates: start: 20071005, end: 20071005
  2. DOMPERIDONE (DOMPERIDONE) [Concomitant]
  3. AMINOPHYLLIN [Concomitant]

REACTIONS (2)
  - FEEDING DISORDER OF INFANCY OR EARLY CHILDHOOD [None]
  - ILEUS [None]
